FAERS Safety Report 5106950-5 (Version None)
Quarter: 2006Q3

REPORT INFORMATION
  Report Type: 
  Country: None (occurrence: None)
  Receive Date: 20060913
  Receipt Date: 20060824
  Transmission Date: 20061208
  Serious: Yes (Hospitalization, Other)
  Sender: FDA-Public Use
  Company Number: JP200605003962

PATIENT
  Age: 56 Year
  Sex: Female

DRUGS (5)
  1. GEMZAR [Suspect]
     Indication: METASTATIC NEOPLASM
     Dosage: 1200 MG, OTHER, INTRAVENOUS
     Route: 042
     Dates: start: 20060404, end: 20060101
  2. CISPLATIN [Concomitant]
  3. FAMOTIDINE [Concomitant]
  4. DOXAZOSIN MESYLATE [Concomitant]
  5. FENTANYL [Concomitant]

REACTIONS (3)
  - NAUSEA [None]
  - OLIGURIA [None]
  - ORAL INTAKE REDUCED [None]
